FAERS Safety Report 8014996-2 (Version None)
Quarter: 2011Q4

REPORT INFORMATION
  Report Type: 
  Country: None (occurrence: None)
  Receive Date: 20111230
  Receipt Date: 20111221
  Transmission Date: 20120403
  Serious: Yes (Hospitalization)
  Sender: FDA-Public Use
  Company Number: US-BIOGENIDEC-2010BI033703

PATIENT
  Age: 55 Year
  Sex: Male

DRUGS (6)
  1. AVONEX [Suspect]
     Indication: MULTIPLE SCLEROSIS
     Route: 030
     Dates: start: 20040624, end: 20060921
  2. IBUPROFEN (ADVIL) [Concomitant]
     Indication: INFLUENZA LIKE ILLNESS
  3. AVONEX [Suspect]
     Route: 030
     Dates: start: 20090508
  4. IBUPROFEN (ADVIL) [Concomitant]
     Indication: FATIGUE
  5. PREDNISONE TAB [Concomitant]
     Indication: FATIGUE
  6. PREDNISONE TAB [Concomitant]
     Indication: INFLUENZA LIKE ILLNESS

REACTIONS (5)
  - WEIGHT DECREASED [None]
  - GAIT DISTURBANCE [None]
  - FATIGUE [None]
  - INFLUENZA LIKE ILLNESS [None]
  - CELLULITIS [None]
